FAERS Safety Report 19241474 (Version 1)
Quarter: 2021Q2

REPORT INFORMATION
  Report Type: Spontaneous
  Country: JP (occurrence: JP)
  Receive Date: 20210511
  Receipt Date: 20210511
  Transmission Date: 20210717
  Serious: Yes (Death)
  Sender: FDA-Public Use
  Company Number: JP-TAIHO ONCOLOGY  INC-JPTT210053

PATIENT
  Age: 64 Year
  Sex: Male

DRUGS (1)
  1. LONSURF [Suspect]
     Active Substance: TIPIRACIL HYDROCHLORIDE\TRIFLURIDINE
     Indication: COLORECTAL CANCER
     Dosage: AT A REDUCED DOSE, DETAILS NOT REPORTED, CYCLE 1
     Route: 048

REACTIONS (2)
  - Colorectal cancer [Fatal]
  - Renal impairment [Unknown]
